FAERS Safety Report 25128194 (Version 1)
Quarter: 2025Q1

REPORT INFORMATION
  Report Type: Report from Study
  Country: US (occurrence: US)
  Receive Date: 20250327
  Receipt Date: 20250327
  Transmission Date: 20250409
  Serious: Yes (Death, Other)
  Sender: MYLAN
  Company Number: US-MYLANLABS-2025M1025392

PATIENT
  Age: 56 Year
  Sex: Female

DRUGS (2)
  1. XANAX [Suspect]
     Active Substance: ALPRAZOLAM
     Indication: Hernia pain
  2. MORPHINE [Suspect]
     Active Substance: MORPHINE
     Indication: Hernia pain

REACTIONS (2)
  - Death [Fatal]
  - Off label use [Unknown]
